FAERS Safety Report 7111383-6 (Version None)
Quarter: 2010Q4

REPORT INFORMATION
  Report Type: 
  Country: None (occurrence: None)
  Receive Date: 20101118
  Receipt Date: 20101115
  Transmission Date: 20110411
  Serious: Yes (Death, Other)
  Sender: FDA-Public Use
  Company Number: PHHY2010US74577

PATIENT
  Sex: Female
  Weight: 66 kg

DRUGS (1)
  1. EXJADE [Suspect]
     Indication: ANAEMIA
     Dosage: 1250 MG, QD
     Route: 048
     Dates: start: 20070101

REACTIONS (2)
  - CEREBROVASCULAR ACCIDENT [None]
  - DEATH [None]
